FAERS Safety Report 8954628 (Version 1)
Quarter: 2012Q4

REPORT INFORMATION
  Report Type: 
  Country: FR (occurrence: FR)
  Receive Date: 20121210
  Receipt Date: 20121210
  Transmission Date: 20130627
  Serious: Yes (Death, Other)
  Sender: FDA-Public Use
  Company Number: FR-BRISTOL-MYERS SQUIBB COMPANY-17168253

PATIENT
  Age: 81 Year
  Sex: Female

DRUGS (9)
  1. COUMADIN [Suspect]
     Route: 048
     Dates: end: 20121107
  2. LEVOTHYROX [Concomitant]
  3. CORDARONE [Concomitant]
  4. TEMERIT [Concomitant]
  5. TRIATEC [Concomitant]
  6. INIPOMP [Concomitant]
  7. ZYPREXA [Concomitant]
  8. CRESTOR [Concomitant]
  9. KARDEGIC [Concomitant]

REACTIONS (4)
  - Cerebral haematoma [Fatal]
  - International normalised ratio increased [Fatal]
  - Bundle branch block [Unknown]
  - Hypertension [Unknown]
